FAERS Safety Report 13166534 (Version 1)
Quarter: 2017Q1

REPORT INFORMATION
  Report Type: Spontaneous
  Country: US (occurrence: US)
  Receive Date: 20170126
  Receipt Date: 20170126
  Transmission Date: 20170428
  Serious: Yes (Hospitalization)
  Sender: FDA-Public Use
  Company Number: None

PATIENT
  Age: 67 Year
  Sex: Female
  Weight: 88 kg

DRUGS (1)
  1. ISOVUE 370 [Suspect]
     Active Substance: IOPAMIDOL
     Indication: ANGIOGRAM
     Dates: start: 20170125, end: 20170125

REACTIONS (5)
  - Aggression [None]
  - Feeling abnormal [None]
  - Dyspnoea [None]
  - Feeling hot [None]
  - Contrast media reaction [None]

NARRATIVE: CASE EVENT DATE: 20170125
